FAERS Safety Report 4413915-5 (Version None)
Quarter: 2004Q3

REPORT INFORMATION
  Report Type: 
  Country: None (occurrence: None)
  Receive Date: 20040803
  Receipt Date: 20040722
  Transmission Date: 20050211
  Serious: Yes (Congenital Anomaly)
  Sender: FDA-Public Use
  Company Number: GB-BRISTOL-MYERS SQUIBB COMPANY-12647988

PATIENT

DRUGS (3)
  1. DIDANOSINE [Suspect]
     Route: 064
  2. ZIDOVUDINE [Suspect]
     Route: 064
  3. NEVIRAPINE [Suspect]
     Route: 064

REACTIONS (2)
  - CONGENITAL ANOMALY [None]
  - PREGNANCY [None]
